FAERS Safety Report 18597764 (Version 1)
Quarter: 2020Q4

REPORT INFORMATION
  Report Type: Spontaneous
  Country: US (occurrence: US)
  Receive Date: 20201210
  Receipt Date: 20201210
  Transmission Date: 20210114
  Serious: Yes (Hospitalization, Other)
  Sender: FDA-Public Use
  Company Number: US-LUPIN PHARMACEUTICALS INC.-2020-10061

PATIENT
  Age: 59 Year
  Sex: Female

DRUGS (3)
  1. MITOMYCIN C [Concomitant]
     Active Substance: MITOMYCIN
     Indication: GLAUCOMA
     Dosage: UNK
     Route: 065
  2. PREDNISONE. [Suspect]
     Active Substance: PREDNISONE
     Indication: GLAUCOMA
     Dosage: UNK
     Route: 048
  3. TRIAMCINOLONE [Suspect]
     Active Substance: TRIAMCINOLONE
     Indication: GLAUCOMA
     Dosage: UNK (SUBTENONS)
     Route: 065

REACTIONS (4)
  - Rhegmatogenous retinal detachment [Recovering/Resolving]
  - Eye infection toxoplasmal [Recovering/Resolving]
  - Toxoplasmosis [Recovering/Resolving]
  - Tractional retinal detachment [Recovering/Resolving]
